FAERS Safety Report 9932524 (Version 2)
Quarter: 2014Q1

REPORT INFORMATION
  Report Type: Spontaneous
  Country: US (occurrence: US)
  Receive Date: 20140228
  Receipt Date: 20140228
  Transmission Date: 20141002
  Serious: No
  Sender: FDA-Public Use
  Company Number: US-ABBVIE-13P-163-1071629-00

PATIENT
  Age: 57 Year
  Sex: Male
  Weight: 72.64 kg

DRUGS (2)
  1. ANDROGEL [Suspect]
     Indication: BLOOD TESTOSTERONE DECREASED
     Dosage: 2.5 GRAMS/ 2 PACKETS DAILY
     Route: 061
     Dates: start: 201301
  2. ANDROGEL [Suspect]
     Dosage: 2 PACKETS
     Dates: start: 20130124

REACTIONS (3)
  - Drug ineffective [Recovering/Resolving]
  - Asthenia [Recovering/Resolving]
  - Fatigue [Recovering/Resolving]
